FAERS Safety Report 23932255 (Version 2)
Quarter: 2024Q3

REPORT INFORMATION
  Report Type: Report from Study
  Country: CZ (occurrence: CZ)
  Receive Date: 20240603
  Receipt Date: 20240703
  Transmission Date: 20241017
  Serious: Yes (Other)
  Sender: BAYER
  Company Number: CZ-BAYER-2024A078709

PATIENT
  Age: 26 Year
  Sex: Female

DRUGS (2)
  1. KYLEENA [Suspect]
     Active Substance: LEVONORGESTREL
     Indication: Contraception
     Dosage: 17.5?G/DAY
     Route: 015
     Dates: start: 20230622
  2. SERTRALINE [Concomitant]
     Active Substance: SERTRALINE HYDROCHLORIDE

REACTIONS (1)
  - Syncope [None]

NARRATIVE: CASE EVENT DATE: 20230622
